FAERS Safety Report 8970726 (Version 1)
Quarter: 2012Q4

REPORT INFORMATION
  Report Type: 
  Country: US (occurrence: US)
  Receive Date: 20121218
  Receipt Date: 20121218
  Transmission Date: 20130627
  Serious: No
  Sender: FDA-Public Use
  Company Number: US-GLAXOSMITHKLINE-A0996348A

PATIENT
  Age: 65 Year
  Sex: Female

DRUGS (1)
  1. NICOTINE [Suspect]
     Indication: EX-TOBACCO USER
     Dosage: 2MG Single dose
     Route: 048
     Dates: start: 20120921, end: 20120921

REACTIONS (2)
  - Thermal burn [Recovered/Resolved]
  - Thermal burn [Recovered/Resolved]
